FAERS Safety Report 4933768-6 (Version None)
Quarter: 2006Q1

REPORT INFORMATION
  Report Type: 
  Country: None (occurrence: None)
  Receive Date: 20060306
  Receipt Date: 20050829
  Transmission Date: 20060701
  Serious: Yes (Disabling)
  Sender: FDA-Public Use
  Company Number: US-MERCK-0508USA04807

PATIENT
  Age: 40 Year
  Sex: Male
  Weight: 86 kg

DRUGS (3)
  1. VIOXX [Suspect]
     Indication: BACK PAIN
     Route: 048
     Dates: start: 20000101, end: 20020101
  2. DARVOCET [Concomitant]
     Route: 065
  3. SKELAXIN [Concomitant]
     Route: 065

REACTIONS (5)
  - ADVERSE EVENT [None]
  - BACK INJURY [None]
  - ELECTROCUTION [None]
  - HEART RATE INCREASED [None]
  - HYPERTENSION [None]
